FAERS Safety Report 24094172 (Version 1)
Quarter: 2024Q3

REPORT INFORMATION
  Report Type: Other
  Country: FR (occurrence: FR)
  Receive Date: 20240716
  Receipt Date: 20240716
  Transmission Date: 20241016
  Serious: Yes (Hospitalization)
  Sender: ZYDUS PHARM
  Company Number: None

PATIENT

DRUGS (1)
  1. ELETRIPTAN [Suspect]
     Active Substance: ELETRIPTAN
     Indication: Migraine
     Dosage: 40 MILLIGRAM, PRN, 1 AS NECESSARY
     Route: 048
     Dates: start: 20240528, end: 20240528

REACTIONS (2)
  - Acute coronary syndrome [Recovered/Resolved]
  - Coronary artery dissection [Recovered/Resolved]

NARRATIVE: CASE EVENT DATE: 20240529
